FAERS Safety Report 25214014 (Version 1)
Quarter: 2025Q2

REPORT INFORMATION
  Report Type: Spontaneous
  Country: US (occurrence: US)
  Receive Date: 20250418
  Receipt Date: 20250418
  Transmission Date: 20250716
  Serious: No
  Sender: PFIZER
  Company Number: US-PFIZER INC-PV202400090546

PATIENT
  Age: 70 Year
  Sex: Female
  Weight: 84.82 kg

DRUGS (6)
  1. PREMARIN [Suspect]
     Active Substance: ESTROGENS, CONJUGATED
     Indication: Menopausal symptoms
  2. PREMARIN [Suspect]
     Active Substance: ESTROGENS, CONJUGATED
     Dosage: 0.3 MG TABLET ONCE A DAY BY MOUTH
     Route: 048
  3. VERAPAMIL [Concomitant]
     Active Substance: VERAPAMIL HYDROCHLORIDE
     Indication: Migraine
     Dosage: 120 MG, 2X/DAY
     Route: 048
  4. SUMATRIPTAN [Concomitant]
     Active Substance: SUMATRIPTAN
     Indication: Migraine
     Route: 048
  5. LOSARTAN POTASSIUM [Concomitant]
     Active Substance: LOSARTAN POTASSIUM
     Indication: Blood pressure measurement
     Dosage: 25 MG, 2X/DAY (25MG TWICE A DAY TABLET BY MOUTH)
     Route: 048
  6. PROGESTERONE [Concomitant]
     Active Substance: PROGESTERONE
     Dosage: 100 MG, 1X/DAY

REACTIONS (2)
  - Hot flush [Unknown]
  - Condition aggravated [Unknown]
